FAERS Safety Report 17009937 (Version 1)
Quarter: 2019Q4

REPORT INFORMATION
  Report Type: Spontaneous
  Country: GH (occurrence: GH)
  Receive Date: 20191108
  Receipt Date: 20191108
  Transmission Date: 20200122
  Serious: Yes (Other)
  Sender: FDA-Public Use
  Company Number: GH-BAXTER-2019BAX022675

PATIENT
  Age: 60 Year
  Sex: Male

DRUGS (1)
  1. DOXIL [Suspect]
     Active Substance: DOXORUBICIN HYDROCHLORIDE
     Indication: NASAL SINUS CANCER
     Route: 065

REACTIONS (1)
  - Drug ineffective [Unknown]
